FAERS Safety Report 7055468-1 (Version None)
Quarter: 2010Q4

REPORT INFORMATION
  Report Type: 
  Country: None (occurrence: None)
  Receive Date: 20101021
  Receipt Date: 20101015
  Transmission Date: 20110411
  Serious: Yes (Other)
  Sender: FDA-Public Use
  Company Number: FR-SANOFI-AVENTIS-2010SA059501

PATIENT
  Age: 78 Year
  Sex: Male

DRUGS (8)
  1. ZOLPIDEM WINTHROP [Suspect]
     Indication: INSOMNIA
     Route: 048
     Dates: start: 20100401, end: 20101001
  2. ZOLPIDEM WINTHROP [Suspect]
     Route: 048
     Dates: start: 20101003, end: 20101003
  3. ASPEGIC 1000 [Concomitant]
     Indication: PAIN
  4. ZALDIAR [Concomitant]
     Indication: PAIN
  5. CORTISONE [Concomitant]
     Indication: PRODUCT USED FOR UNKNOWN INDICATION
  6. ALCOHOL [Concomitant]
     Dates: start: 20101003, end: 20101003
  7. ALCOHOL [Concomitant]
     Dates: start: 20101003, end: 20101003
  8. MICARDIS [Concomitant]
     Indication: PRODUCT USED FOR UNKNOWN INDICATION

REACTIONS (6)
  - AMNESIA [None]
  - DISORIENTATION [None]
  - FEELING ABNORMAL [None]
  - INCORRECT DOSE ADMINISTERED [None]
  - ROAD TRAFFIC ACCIDENT [None]
  - VISUAL IMPAIRMENT [None]
